FAERS Safety Report 18948138 (Version 1)
Quarter: 2021Q1

REPORT INFORMATION
  Report Type: Spontaneous
  Country: US (occurrence: US)
  Receive Date: 20210226
  Receipt Date: 20210226
  Transmission Date: 20210420
  Serious: No
  Sender: FDA-Public Use
  Company Number: US-PFIZER INC-2021143449

PATIENT
  Age: 69 Year
  Sex: Female

DRUGS (1)
  1. VYNDAQEL [Suspect]
     Active Substance: TAFAMIDIS MEGLUMINE
     Indication: AMYLOIDOSIS
     Dosage: 80 MG, 1X/DAY
     Dates: start: 20210111, end: 20210213

REACTIONS (22)
  - Urticaria [Unknown]
  - Chest discomfort [Unknown]
  - Rash [Unknown]
  - Headache [Unknown]
  - Asthenia [Not Recovered/Not Resolved]
  - Anxiety [Unknown]
  - Choking sensation [Unknown]
  - Off label use [Unknown]
  - Fatigue [Not Recovered/Not Resolved]
  - Pyrexia [Unknown]
  - Dyspnoea [Unknown]
  - Heart rate increased [Unknown]
  - Dysphagia [Recovered/Resolved]
  - Dyspepsia [Unknown]
  - Chills [Unknown]
  - Pruritus [Unknown]
  - Gait disturbance [Unknown]
  - Gastrooesophageal reflux disease [Unknown]
  - Diarrhoea [Unknown]
  - Asthenia [Unknown]
  - Abdominal discomfort [Unknown]
  - Sleep disorder [Unknown]

NARRATIVE: CASE EVENT DATE: 2021
